FAERS Safety Report 16695109 (Version 3)
Quarter: 2020Q3

REPORT INFORMATION
  Report Type: Spontaneous
  Country: PL (occurrence: PL)
  Receive Date: 20190813
  Receipt Date: 20200919
  Transmission Date: 20201102
  Serious: Yes (Other)
  Sender: FDA-Public Use
  Company Number: PL-SUN PHARMACEUTICAL INDUSTRIES LTD-2019RR-217215

PATIENT
  Age: 55 Year
  Sex: Female
  Weight: 130 kg

DRUGS (6)
  1. DOCETAXEL. [Suspect]
     Active Substance: DOCETAXEL
     Indication: FIBROMA
     Dosage: 60 MILLIGRAM/SQ. METER, DAY 8 Q3W
     Route: 042
  2. CYCLOPHOSPHAMIDE. [Suspect]
     Active Substance: CYCLOPHOSPHAMIDE
     Indication: FIBROMA
     Route: 065
  3. GEMCITABINE. [Suspect]
     Active Substance: GEMCITABINE
     Indication: FIBROMA
     Dosage: 600 MILLIGRAM/SQ. METER, DAY 1 AND 8 EVERY 3 WEEKS (Q3W)
     Route: 042
  4. DACARBAZINE. [Suspect]
     Active Substance: DACARBAZINE
     Indication: FIBROMA
     Route: 065
  5. DOXORUBICIN [Suspect]
     Active Substance: DOXORUBICIN
     Indication: FIBROMA
     Dosage: 60 MILLIGRAM/SQ. METER, DAY1 Q3W
     Route: 042
  6. CISPLATIN. [Suspect]
     Active Substance: CISPLATIN
     Indication: FIBROMA
     Dosage: 80 MILLIGRAM/SQ. METER, DAY 1 Q3W
     Route: 042

REACTIONS (2)
  - Disease progression [Unknown]
  - Therapeutic product effect incomplete [Unknown]
